FAERS Safety Report 15934341 (Version 4)
Quarter: 2019Q1

REPORT INFORMATION
  Report Type: Spontaneous
  Country: US (occurrence: US)
  Receive Date: 20190207
  Receipt Date: 20190318
  Transmission Date: 20190417
  Serious: No
  Sender: FDA-Public Use
  Company Number: US-SA-2019SA035146

PATIENT
  Age: 62 Year
  Sex: Female

DRUGS (1)
  1. PRALUENT [Suspect]
     Active Substance: ALIROCUMAB
     Indication: TYPE IIA HYPERLIPIDAEMIA
     Dosage: 75 MG, QOW
     Route: 058
     Dates: start: 20180815

REACTIONS (7)
  - Injection site pruritus [Unknown]
  - Injection site rash [Unknown]
  - Glucose tolerance impaired [Unknown]
  - Hypersensitivity [Unknown]
  - Sleep apnoea syndrome [Unknown]
  - Injection site erythema [Unknown]
  - Rash [Unknown]

NARRATIVE: CASE EVENT DATE: 201812
